FAERS Safety Report 12194475 (Version 2)
Quarter: 2016Q2

REPORT INFORMATION
  Report Type: Report from Study
  Country: JP (occurrence: JP)
  Receive Date: 20160321
  Receipt Date: 20160419
  Transmission Date: 20160815
  Serious: Yes (Death)
  Sender: FDA-Public Use
  Company Number: JP-009507513-1511JPN011773

PATIENT
  Age: 78 Year
  Sex: Male
  Weight: 49.5 kg

DRUGS (10)
  1. ARTIST [Concomitant]
     Active Substance: CARVEDILOL
     Dosage: DAILY DOSAGE UNKNOWN, FORMULATION: POR
     Route: 048
  2. EXCEGRAN [Concomitant]
     Active Substance: ZONISAMIDE
     Dosage: DAILY DOSAGE UNKNOWN
     Route: 048
  3. HOKUNALIN [Concomitant]
     Active Substance: TULOBUTEROL
     Dosage: DAILY DOSAGE UNKNOWN, FORMULATION: TAPE
     Route: 062
  4. ATELEC [Concomitant]
     Active Substance: CILNIDIPINE
     Dosage: DAILY DOSAGE UNKNOWN, FORMULATION: POR
     Route: 048
  5. FASTIC [Concomitant]
     Active Substance: NATEGLINIDE
     Dosage: DAILY DOSAGE UNKNOWN, FORMULATION: POR
     Route: 048
  6. TEMODAL [Suspect]
     Active Substance: TEMOZOLOMIDE
     Indication: GLIOBLASTOMA MULTIFORME
     Dosage: 75 MG/M2, QD
     Route: 048
     Dates: start: 20120522, end: 20120606
  7. TEMOZOLOMIDE. [Suspect]
     Active Substance: TEMOZOLOMIDE
     Indication: GLIOBLASTOMA MULTIFORME
     Dosage: 75 MG/M2, QD, STRENGHT: 100 MG
     Route: 041
     Dates: start: 20120424, end: 20120521
  8. GASTER [Concomitant]
     Active Substance: FAMOTIDINE
     Dosage: DAILY DOSAGE UNKNOWN, FORMULATION: POR
     Route: 048
  9. WARFARIN [Concomitant]
     Active Substance: WARFARIN
     Dosage: DAILY DOSAGE UNKNOWN; FORMULATION: POR
     Route: 048
  10. BAKTAR [Concomitant]
     Active Substance: SULFAMETHOXAZOLE\TRIMETHOPRIM
     Indication: ANTIFUNGAL PROPHYLAXIS
     Dosage: DAILY DOSAGE UNKNOWN; FORMULATION: POR; ROUTE: TUBE.
     Dates: start: 20120424, end: 20120605

REACTIONS (6)
  - Eosinophil count increased [Recovering/Resolving]
  - Hyponatraemia [Not Recovered/Not Resolved]
  - Blood alkaline phosphatase increased [Recovering/Resolving]
  - Pneumonia aspiration [Fatal]
  - Lymphocyte count decreased [Recovering/Resolving]
  - C-reactive protein increased [Recovering/Resolving]

NARRATIVE: CASE EVENT DATE: 20120426
